FAERS Safety Report 6968752-4 (Version None)
Quarter: 2010Q3

REPORT INFORMATION
  Report Type: 
  Country: None (occurrence: None)
  Receive Date: 20100907
  Receipt Date: 20100901
  Transmission Date: 20110219
  Serious: Yes (Hospitalization, Other)
  Sender: FDA-Public Use
  Company Number: CA-MERCK-1009USA00285

PATIENT
  Age: 69 Year
  Sex: Male

DRUGS (12)
  1. PRINIVIL [Suspect]
     Route: 048
  2. ALBUTEROL [Concomitant]
     Route: 065
  3. ASPIRIN [Suspect]
     Route: 065
  4. FERROUS GLUCONATE [Concomitant]
     Route: 065
  5. IMOVANE [Concomitant]
     Route: 065
  6. LIPITOR [Concomitant]
     Route: 065
  7. LORAZEPAM [Concomitant]
     Route: 065
  8. VITAMINS (UNSPECIFIED) [Concomitant]
     Route: 065
  9. NORVASC [Suspect]
     Route: 065
  10. PLAVIX [Suspect]
     Route: 065
  11. PREVACID [Suspect]
     Route: 065
  12. WARFARIN [Suspect]
     Route: 065

REACTIONS (10)
  - CYST [None]
  - GASTRIC ULCER HAEMORRHAGE [None]
  - HAEMATEMESIS [None]
  - HAEMATOMA [None]
  - HAEMOGLOBIN DECREASED [None]
  - HYPOVOLAEMIA [None]
  - INTERNATIONAL NORMALISED RATIO ABNORMAL [None]
  - NEPHROPATHY [None]
  - OCCULT BLOOD POSITIVE [None]
  - RENAL FAILURE [None]
